FAERS Safety Report 6552902-8 (Version None)
Quarter: 2010Q1

REPORT INFORMATION
  Report Type: 
  Country: None (occurrence: None)
  Receive Date: 20100122
  Receipt Date: 20100120
  Transmission Date: 20100710
  Serious: Yes (Death, Hospitalization)
  Sender: FDA-Public Use
  Company Number: 2008SP009046

PATIENT
  Age: 74 Year
  Sex: Male
  Weight: 63 kg

DRUGS (7)
  1. TEMODAL [Suspect]
     Indication: GLIOBLASTOMA
     Dosage: 120 MG; QD; PO
     Route: 048
     Dates: start: 20080204, end: 20080316
  2. ZONISAMIDE [Suspect]
     Indication: EPILEPSY
     Dosage: 200 MG; BID; PO
     Route: 048
     Dates: start: 20080107, end: 20080411
  3. ZONISAMIDE [Suspect]
     Indication: PROPHYLAXIS
     Dosage: 200 MG; BID; PO
     Route: 048
     Dates: start: 20080107, end: 20080411
  4. NORVASC (CON.) [Concomitant]
  5. BLOPRESS (CON.) [Concomitant]
  6. MAGMITT (CON.) [Concomitant]
  7. BAKTAR (CON.) [Concomitant]

REACTIONS (5)
  - ANAEMIA [None]
  - BONE MARROW FAILURE [None]
  - LEUKOPENIA [None]
  - THROMBOCYTOPENIA [None]
  - TUMOUR HAEMORRHAGE [None]
